FAERS Safety Report 24422597 (Version 2)
Quarter: 2024Q4

REPORT INFORMATION
  Report Type: Spontaneous
  Country: IE (occurrence: IE)
  Receive Date: 20241010
  Receipt Date: 20241024
  Transmission Date: 20250114
  Serious: Yes (Death, Hospitalization, Other)
  Sender: PFIZER
  Company Number: None

PATIENT
  Age: 60 Year
  Sex: Female

DRUGS (18)
  1. PIPERACILLIN SODIUM\TAZOBACTAM SODIUM [Suspect]
     Active Substance: PIPERACILLIN SODIUM\TAZOBACTAM SODIUM
     Dosage: UNK
     Route: 042
     Dates: start: 20210924, end: 20211004
  2. VANCOMYCIN HYDROCHLORIDE [Suspect]
     Active Substance: VANCOMYCIN HYDROCHLORIDE
     Dosage: 1275 MG, 2X/DAY (2G LOADING DOSE)
     Route: 042
     Dates: start: 20210924, end: 20210929
  3. AZITHROMYCIN [Suspect]
     Active Substance: AZITHROMYCIN
  4. FLAGYL [Suspect]
     Active Substance: METRONIDAZOLE\METRONIDAZOLE HYDROCHLORIDE
     Indication: Antibiotic therapy
     Dosage: UNK
     Route: 042
     Dates: start: 20210913, end: 20210917
  5. FLAGYL [Suspect]
     Active Substance: METRONIDAZOLE\METRONIDAZOLE HYDROCHLORIDE
     Dosage: UNK
     Route: 042
     Dates: start: 20211015, end: 20211021
  6. FLAGYL [Suspect]
     Active Substance: METRONIDAZOLE\METRONIDAZOLE HYDROCHLORIDE
     Dosage: UNK
     Route: 042
     Dates: start: 20211026, end: 20211029
  7. FLAGYL [Suspect]
     Active Substance: METRONIDAZOLE\METRONIDAZOLE HYDROCHLORIDE
     Dosage: UNK
     Route: 042
     Dates: start: 20211102, end: 20211108
  8. AUGMENTIN [Suspect]
     Active Substance: AMOXICILLIN\CLAVULANATE POTASSIUM
     Indication: Antibiotic therapy
     Dosage: UNK
     Route: 042
     Dates: start: 20210913, end: 20210917
  9. AUGMENTIN [Suspect]
     Active Substance: AMOXICILLIN\CLAVULANATE POTASSIUM
     Dosage: UNK
     Route: 048
     Dates: start: 20211004, end: 20211008
  10. AUGMENTIN [Suspect]
     Active Substance: AMOXICILLIN\CLAVULANATE POTASSIUM
     Dosage: UNK
     Route: 042
     Dates: start: 20211015, end: 20211021
  11. AUGMENTIN [Suspect]
     Active Substance: AMOXICILLIN\CLAVULANATE POTASSIUM
     Dosage: UNK
     Route: 042
     Dates: start: 20211026, end: 20211029
  12. AUGMENTIN [Suspect]
     Active Substance: AMOXICILLIN\CLAVULANATE POTASSIUM
     Dosage: UNK
     Route: 048
     Dates: start: 20211029, end: 20211102
  13. CIPROFLOXACIN [Suspect]
     Active Substance: CIPROFLOXACIN
     Indication: Antibiotic therapy
     Dosage: UNK
     Dates: start: 20211102, end: 20211108
  14. PREDNISONE [Concomitant]
     Active Substance: PREDNISONE
     Dosage: 5 MG
     Dates: start: 20210914
  15. PREDNISONE [Concomitant]
     Active Substance: PREDNISONE
     Dosage: 5 MG
     Dates: start: 20211007
  16. HYDROCORTISONE [Concomitant]
     Active Substance: HYDROCORTISONE
     Dosage: 100 MG
     Route: 042
     Dates: start: 20210915
  17. HYDROCORTISONE [Concomitant]
     Active Substance: HYDROCORTISONE
     Dosage: 100 MG, 2X/DAY
     Route: 042
     Dates: start: 20210919
  18. FENTANYL [Concomitant]
     Active Substance: FENTANYL
     Dosage: REDUCED
     Dates: start: 20210915

REACTIONS (26)
  - Acute kidney injury [Fatal]
  - Enterococcal infection [Fatal]
  - Renal failure [Fatal]
  - COVID-19 [Fatal]
  - Abdominal sepsis [Fatal]
  - Anaemia postoperative [Unknown]
  - Post procedural sepsis [Unknown]
  - Inflammation [Unknown]
  - Ileus [Unknown]
  - Gastrointestinal stoma output increased [Unknown]
  - Refeeding syndrome [Unknown]
  - Altered state of consciousness [Unknown]
  - Pain [Unknown]
  - Weight decreased [Unknown]
  - Hypophagia [Unknown]
  - Lethargy [Unknown]
  - Fatigue [Unknown]
  - Gait disturbance [Unknown]
  - Fluid intake reduced [Unknown]
  - Slow response to stimuli [Unknown]
  - Asthenia [Unknown]
  - Pallor [Unknown]
  - Malaise [Unknown]
  - Body temperature increased [Unknown]
  - Malnutrition [Unknown]
  - Vomiting [Unknown]

NARRATIVE: CASE EVENT DATE: 20210101
